FAERS Safety Report 4757948-8 (Version None)
Quarter: 2005Q3

REPORT INFORMATION
  Report Type: 
  Country: None (occurrence: None)
  Receive Date: 20050830
  Receipt Date: 20050818
  Transmission Date: 20060218
  Serious: Yes (Hospitalization, Disabling, Other)
  Sender: FDA-Public Use
  Company Number: 2005115341

PATIENT
  Age: 26 Year
  Sex: Female
  Weight: 45.3597 kg

DRUGS (2)
  1. DEPO-PROVERA [Suspect]
     Indication: CONTRACEPTION
     Dosage: (EVERY 3 MONTHS, MOST RECENT INJECTION), INTRAMUSCULAR
     Route: 030
     Dates: start: 20050211, end: 20050211
  2. DEPO-PROVERA [Suspect]
     Indication: ENDOMETRIOSIS
     Dosage: (EVERY 3 MONTHS, MOST RECENT INJECTION), INTRAMUSCULAR
     Route: 030
     Dates: start: 20050211, end: 20050211

REACTIONS (10)
  - ANAEMIA [None]
  - ANXIETY DISORDER [None]
  - DEPRESSION [None]
  - GASTRIC DISORDER [None]
  - MARITAL PROBLEM [None]
  - MIGRAINE [None]
  - MOOD ALTERED [None]
  - PANIC ATTACK [None]
  - VAGINAL HAEMORRHAGE [None]
  - WEIGHT INCREASED [None]
